FAERS Safety Report 10861612 (Version 1)
Quarter: 2015Q1

REPORT INFORMATION
  Report Type: Spontaneous
  Country: US (occurrence: US)
  Receive Date: 20150223
  Receipt Date: 20150223
  Transmission Date: 20150721
  Serious: No
  Sender: FDA-Public Use
  Company Number: US-JNJFOC-20150209325

PATIENT

DRUGS (4)
  1. RISPERIDONE. [Suspect]
     Active Substance: RISPERIDONE
     Indication: PARKINSON^S DISEASE
     Route: 065
  2. HALOPERIDOL. [Suspect]
     Active Substance: HALOPERIDOL
     Indication: PARKINSON^S DISEASE
     Route: 065
  3. PIMOZIDE [Suspect]
     Active Substance: PIMOZIDE
     Indication: PARKINSON^S DISEASE
     Route: 065
  4. PALIPERIDONE [Suspect]
     Active Substance: PALIPERIDONE
     Indication: PARKINSON^S DISEASE
     Route: 048

REACTIONS (1)
  - Wrong drug administered [Unknown]
